FAERS Safety Report 5086423-9 (Version None)
Quarter: 2006Q3

REPORT INFORMATION
  Report Type: 
  Country: None (occurrence: None)
  Receive Date: 20060823
  Receipt Date: 20060815
  Transmission Date: 20061208
  Serious: No
  Sender: FDA-Public Use
  Company Number: GB-JNJFOC-20060302743

PATIENT
  Sex: Male
  Weight: 40.5 kg

DRUGS (3)
  1. RISPERDAL [Suspect]
     Indication: SELF INJURIOUS BEHAVIOUR
     Route: 048
  2. RISPERDAL [Suspect]
     Indication: ABNORMAL BEHAVIOUR
     Route: 048
  3. LACTULOSE [Concomitant]
     Indication: CONSTIPATION
     Route: 048

REACTIONS (1)
  - BLOOD BILIRUBIN INCREASED [None]
